FAERS Safety Report 5151410-9 (Version None)
Quarter: 2006Q4

REPORT INFORMATION
  Report Type: 
  Country: None (occurrence: None)
  Receive Date: 20061115
  Receipt Date: 20061101
  Transmission Date: 20070319
  Serious: Yes (Hospitalization, Other)
  Sender: FDA-Public Use
  Company Number: CA-ELI_LILLY_AND_COMPANY-CA200611000781

PATIENT
  Age: 71 Year
  Sex: Female

DRUGS (9)
  1. EVISTA [Suspect]
     Indication: OSTEOPOROSIS
     Dosage: 60 MG, DAILY (1/D)
     Route: 048
     Dates: start: 19990101
  2. CLOPIDOGREL BISULFATE [Concomitant]
  3. LIPITOR [Concomitant]
  4. ALTACE [Concomitant]
  5. METOPROLOL TARTRATE [Concomitant]
  6. ACETYLSALICYLIC ACID SRT [Concomitant]
  7. CALCIUM [Concomitant]
  8. OMEGA-3 [Concomitant]
  9. VITAMIN E [Concomitant]

REACTIONS (9)
  - ABDOMINAL PAIN UPPER [None]
  - ARTERIAL OCCLUSIVE DISEASE [None]
  - CARDIAC DISORDER [None]
  - CHEST PAIN [None]
  - HAEMORRHAGE [None]
  - HYPOAESTHESIA [None]
  - PAIN [None]
  - PAIN IN EXTREMITY [None]
  - PHARYNGOLARYNGEAL PAIN [None]
